FAERS Safety Report 9394725 (Version 1)
Quarter: 2013Q3

REPORT INFORMATION
  Report Type: Spontaneous
  Country: US (occurrence: US)
  Receive Date: 20130711
  Receipt Date: 20130711
  Transmission Date: 20140515
  Serious: Yes (Hospitalization)
  Sender: FDA-Public Use
  Company Number: US-SANOFI-AVENTIS-2013SA068530

PATIENT
  Age: 68 Year
  Sex: Female

DRUGS (2)
  1. APIDRA [Suspect]
     Dosage: DOSE:25 UNIT(S)
     Route: 058
  2. LANTUS [Suspect]
     Route: 051

REACTIONS (2)
  - Adverse event [Unknown]
  - Overdose [Unknown]
